FAERS Safety Report 11622774 (Version 1)
Quarter: 2015Q4

REPORT INFORMATION
  Report Type: Spontaneous
  Country: US (occurrence: US)
  Receive Date: 20151013
  Receipt Date: 20151013
  Transmission Date: 20160304
  Serious: No
  Sender: FDA-Public Use
  Company Number: US-JNJFOC-20150116819

PATIENT
  Age: 68 Year
  Sex: Female
  Weight: 50.8 kg

DRUGS (1)
  1. TYLENOL REGULAR STRENGTH [Suspect]
     Active Substance: ACETAMINOPHEN
     Indication: PAIN
     Route: 048
     Dates: start: 20150121, end: 20150121

REACTIONS (2)
  - Product label issue [Unknown]
  - Incorrect dose administered [Unknown]
